FAERS Safety Report 9644986 (Version 1)
Quarter: 2013Q4

REPORT INFORMATION
  Report Type: Spontaneous
  Country: US (occurrence: US)
  Receive Date: 20131025
  Receipt Date: 20131025
  Transmission Date: 20140711
  Serious: No
  Sender: FDA-Public Use
  Company Number: US-PFIZER INC-2013305145

PATIENT
  Age: 68 Year
  Sex: Female
  Weight: 61.22 kg

DRUGS (1)
  1. ATORVASTATIN CALCIUM [Suspect]
     Indication: BLOOD CHOLESTEROL INCREASED
     Dosage: 10 MG, DAILY
     Dates: start: 2013, end: 2013

REACTIONS (1)
  - Drug ineffective [Recovering/Resolving]
